FAERS Safety Report 8446354 (Version 2)
Quarter: 2012Q4

REPORT INFORMATION
  Report Type: 
  Country: DE (occurrence: DE)
  Receive Date: 20120307
  Receipt Date: 20120920
  Transmission Date: 20130627
  Serious: Yes (Life-Threatening)
  Sender: FDA-Public Use
  Company Number: DE-B.I. PHARMACEUTICALS,INC./RIDGEFIELD-2012-DE-00660DE

PATIENT
  Age: 81 Year
  Sex: Female

DRUGS (6)
  1. PRADAXA [Suspect]
     Indication: ATRIAL FIBRILLATION
     Dosage: 220 mg
     Route: 048
     Dates: end: 20120229
  2. BISOPROLOL [Concomitant]
     Dosage: 10 mg
     Route: 048
  3. ENALAPRIL [Concomitant]
     Dosage: 2 anz
     Route: 048
  4. PANTOZOL [Concomitant]
     Dosage: 2 anz
     Route: 048
  5. FOLSAN [Concomitant]
     Dosage: 5 mg
     Route: 048
  6. L-THYROXIN [Concomitant]
     Dosage: 12 anz
     Route: 048

REACTIONS (5)
  - Circulatory collapse [Not Recovered/Not Resolved]
  - Dehydration [Not Recovered/Not Resolved]
  - Small intestinal haemorrhage [Not Recovered/Not Resolved]
  - Haemoglobin decreased [Not Recovered/Not Resolved]
  - Haematochezia [Recovered/Resolved]
